FAERS Safety Report 22080754 (Version 2)
Quarter: 2023Q1

REPORT INFORMATION
  Report Type: Spontaneous
  Country: IL (occurrence: IL)
  Receive Date: 20230309
  Receipt Date: 20230322
  Transmission Date: 20230417
  Serious: Yes (Hospitalization)
  Sender: FDA-Public Use
  Company Number: IL-TEVAIL-2023-IL-2863411

PATIENT
  Age: 64 Year
  Sex: Male

DRUGS (5)
  1. CISPLATIN [Suspect]
     Active Substance: CISPLATIN
     Indication: Recurrent cancer
     Dosage: 4 COURSES
     Route: 065
  2. CISPLATIN [Suspect]
     Active Substance: CISPLATIN
     Indication: Acinic cell carcinoma of salivary gland
  3. VINORELBINE [Suspect]
     Active Substance: VINORELBINE TARTRATE
     Indication: Recurrent cancer
     Dosage: 4 COURSES
     Route: 065
  4. VINORELBINE [Suspect]
     Active Substance: VINORELBINE TARTRATE
     Indication: Acinic cell carcinoma of salivary gland
  5. DEVICE [Suspect]
     Active Substance: DEVICE
     Indication: Vocal cord paralysis
     Dosage: RENU VOICE
     Route: 065

REACTIONS (2)
  - Neutropenia [Unknown]
  - Abscess neck [Recovered/Resolved]
